FAERS Safety Report 7262895-6 (Version None)
Quarter: 2011Q1

REPORT INFORMATION
  Report Type: 
  Country: None (occurrence: None)
  Receive Date: 20110130
  Receipt Date: 20100907
  Transmission Date: 20110831
  Serious: No
  Sender: FDA-Public Use
  Company Number: US-ABBOTT-10P-163-0668777-00

PATIENT
  Age: 68 Year
  Sex: Female

DRUGS (4)
  1. HUMIRA [Suspect]
     Indication: RHEUMATOID ARTHRITIS
  2. MSM [Concomitant]
     Indication: PRODUCT USED FOR UNKNOWN INDICATION
  3. AQUAZINE H [Concomitant]
     Indication: MENIERE'S DISEASE
     Dosage: 1/2 TAB DAILY
  4. MULTIVITAMIN [Concomitant]
     Indication: VITAMIN SUPPLEMENTATION
     Dosage: PER PATIENT ALL KINDS OF VITAMINS

REACTIONS (2)
  - RASH [None]
  - PRURITUS [None]
